FAERS Safety Report 12463249 (Version 1)
Quarter: 2016Q2

REPORT INFORMATION
  Report Type: Spontaneous
  Country: US (occurrence: US)
  Receive Date: 20160614
  Receipt Date: 20160614
  Transmission Date: 20160815
  Serious: Yes (Hospitalization, Other)
  Sender: FDA-Public Use
  Company Number: US-ACCORD-041325

PATIENT
  Age: 40 Year
  Sex: Female

DRUGS (2)
  1. PACLITAXEL/PACLITAXEL LIPOSOME [Suspect]
     Active Substance: PACLITAXEL
     Indication: OVARIAN SERTOLI-LEYDIG CELL TUMOUR
     Dosage: 2 CYCLES
  2. CARBOPLATIN. [Suspect]
     Active Substance: CARBOPLATIN
     Indication: OVARIAN SERTOLI-LEYDIG CELL TUMOUR
     Dosage: 2 CYCLES

REACTIONS (5)
  - Drug intolerance [Unknown]
  - Herpes zoster [Unknown]
  - Pulmonary toxicity [Unknown]
  - Nausea [Unknown]
  - Abdominal pain [Unknown]
